FAERS Safety Report 13019954 (Version 3)
Quarter: 2017Q1

REPORT INFORMATION
  Report Type: Spontaneous
  Country: IT (occurrence: IT)
  Receive Date: 20161212
  Receipt Date: 20170209
  Transmission Date: 20170428
  Serious: Yes (Hospitalization)
  Sender: FDA-Public Use
  Company Number: IT-TEVA-717827ACC

PATIENT
  Age: 47 Year
  Sex: Female

DRUGS (1)
  1. LANSOPRAZOLE. [Suspect]
     Active Substance: LANSOPRAZOLE
     Indication: ABDOMINAL PAIN UPPER
     Dosage: 30 MILLIGRAM DAILY;
     Route: 048

REACTIONS (7)
  - Urticaria [Unknown]
  - Vomiting [Unknown]
  - Hypotension [Unknown]
  - Hyperaemia [Unknown]
  - Diarrhoea [Unknown]
  - Tremor [Unknown]
  - Sensation of foreign body [Unknown]

NARRATIVE: CASE EVENT DATE: 20161123
